FAERS Safety Report 6421266-2 (Version None)
Quarter: 2009Q4

REPORT INFORMATION
  Report Type: 
  Country: None (occurrence: None)
  Receive Date: 20091030
  Receipt Date: 20090515
  Transmission Date: 20100525
  Serious: Yes (Death)
  Sender: FDA-Public Use
  Company Number: PHEH2009US12908

PATIENT
  Age: 26 Year
  Sex: Male
  Weight: 23.583 kg

DRUGS (1)
  1. EXJADE [Suspect]
     Indication: SICKLE CELL ANAEMIA
     Dosage: 1000MG/ DAILY

REACTIONS (1)
  - DEATH [None]
